FAERS Safety Report 10067540 (Version 2)
Quarter: 2014Q2

REPORT INFORMATION
  Report Type: Spontaneous
  Country: JP (occurrence: JP)
  Receive Date: 20140409
  Receipt Date: 20140409
  Transmission Date: 20141212
  Serious: Yes (Hospitalization, Other)
  Sender: FDA-Public Use
  Company Number: JP-JNJFOC-20130804512

PATIENT
  Sex: 0

DRUGS (1)
  1. HALOPERIDOL DECANOATE [Suspect]
     Indication: SCHIZOPHRENIA
     Route: 030

REACTIONS (7)
  - Investigation [Unknown]
  - Oculogyric crisis [Unknown]
  - Injection site pain [Unknown]
  - Sedation [Unknown]
  - Nipple pain [Unknown]
  - Ejaculation disorder [Unknown]
  - Gait disturbance [Unknown]
